FAERS Safety Report 25985434 (Version 1)
Quarter: 2025Q4

REPORT INFORMATION
  Report Type: Spontaneous
  Country: US (occurrence: US)
  Receive Date: 20251031
  Receipt Date: 20251031
  Transmission Date: 20260118
  Serious: Yes (Other)
  Sender: BRECKENRIDGE PHARMACEUTICAL, INC.
  Company Number: US-Breckenridge Pharmaceutical, Inc.-2187674

PATIENT
  Age: 67 Year
  Sex: Female
  Weight: 59.091 kg

DRUGS (8)
  1. DULOXETINE [Suspect]
     Active Substance: DULOXETINE
     Indication: Neuralgia
  2. DULOXETINE [Suspect]
     Active Substance: DULOXETINE
     Indication: Osteoarthritis
  3. TRAMADOL [Concomitant]
     Active Substance: TRAMADOL
  4. ZOFRAN [Concomitant]
     Active Substance: ONDANSETRON HYDROCHLORIDE
  5. MELOXICAM [Concomitant]
     Active Substance: MELOXICAM
  6. DICYCLOMINE HYDROCHLORIDE [Concomitant]
     Active Substance: DICYCLOMINE HYDROCHLORIDE
  7. ONDANSETRON [Concomitant]
     Active Substance: ONDANSETRON
  8. LOSARTAN [Concomitant]
     Active Substance: LOSARTAN

REACTIONS (5)
  - Abdominal pain upper [Recovering/Resolving]
  - Appendicectomy [Unknown]
  - Anal cancer [Recovered/Resolved]
  - Food allergy [Not Recovered/Not Resolved]
  - Product use issue [Not Recovered/Not Resolved]
